FAERS Safety Report 9205033 (Version 1)
Quarter: 2013Q1

REPORT INFORMATION
  Report Type: Spontaneous
  Country: US (occurrence: None)
  Receive Date: 20120709
  Receipt Date: 20120709
  Transmission Date: 20140127
  Serious: No
  Sender: FDA-Public Use
  Company Number: 2012HGS-003374

PATIENT
  Age: 45 Year
  Sex: Female
  Weight: 141.98 kg

DRUGS (20)
  1. BENLYSTA [Suspect]
     Indication: SYSTEMIC LUPUS ERYTHEMATOSUS
     Dosage: 1 IN 28 D
     Route: 041
     Dates: start: 20120305
  2. CORTICOSTEROIDS (CORTICOSTEROID) (CORTICOSTEROID NOS) [Concomitant]
  3. ETANERCEPT (ETANERCEPT) (ETANERCEPT) [Concomitant]
  4. MEDROL (METHYLPREDINISOLONE) (METHYLPREDNISOLONE) [Concomitant]
  5. PLAQUENIL (HYDROXYCHLOROQUINE SULFATE) (HYDROXYCHLOROQUINE SULFATE) [Concomitant]
  6. LANTUS (INSULIN GLARGINE) (INSULIN GLARGINE) [Concomitant]
  7. SYNTHROID (LEVOTHYROXINE SODIUM) (LEVOTHYROXINE SODIUM) [Concomitant]
  8. MELOXICAM (MELOXICAM) (MELOXICAM) [Concomitant]
  9. COUMADIN (WARFARIN SODIUM) (WARFARIN SODIUM) [Concomitant]
  10. DURAGESIC PATCH (FENTANYL) (FENTANYL) [Concomitant]
  11. SINGULAIR [Concomitant]
  12. PROAIR (SALBUTAMOL SULFATE) (SALBUTAMOL SULFATE) [Concomitant]
  13. PREVACID )LANSOPRAZOLE) (LANSOPRAZOLE) [Concomitant]
  14. SOMA (CARISOPRODOL) (CARISOPRODOL) [Concomitant]
  15. PHENERGAN (PROMETHAZINE) (PROMETHAZINE) [Concomitant]
  16. BENADRYL (DIPHENHYDRAMINE HYDROCHLORIDE) (DIPHENHYDRAMINE HYDROCHLORIDE) [Concomitant]
  17. OXYCODONE (OXYCODONE) (OXYCODONE) [Concomitant]
  18. VITAMIN B12 (CYANOCOBALAMIN) (CYANOCOBALAMIN) [Concomitant]
  19. VITAMIN D (ERGOCALCIFEROL) (ERGOCALCIFEROL) [Concomitant]
  20. LISINOPRIL (LISINOPRIL) (LISINOPRIL) [Concomitant]

REACTIONS (2)
  - Migraine [None]
  - Diarrhoea [None]
